FAERS Safety Report 24216495 (Version 1)
Quarter: 2024Q3

REPORT INFORMATION
  Report Type: Spontaneous
  Country: US (occurrence: US)
  Receive Date: 20240816
  Receipt Date: 20240816
  Transmission Date: 20241017
  Serious: Yes (Other)
  Sender: RANBAXY
  Company Number: US-SUN PHARMACEUTICAL INDUSTRIES LTD-2024R1-462792

PATIENT
  Age: 71 Year
  Sex: Male

DRUGS (1)
  1. CHLORTHALIDONE [Suspect]
     Active Substance: CHLORTHALIDONE
     Indication: Lymphoedema
     Dosage: UNK
     Route: 065

REACTIONS (2)
  - Hypercalcaemia [Recovered/Resolved]
  - Condition aggravated [Unknown]
